FAERS Safety Report 7224530-2 (Version None)
Quarter: 2011Q1

REPORT INFORMATION
  Report Type: 
  Country: None (occurrence: None)
  Receive Date: 20110113
  Receipt Date: 20101216
  Transmission Date: 20110831
  Serious: Yes (Other)
  Sender: FDA-Public Use
  Company Number: US-BAYER-201018951NA

PATIENT
  Sex: Female

DRUGS (4)
  1. YASMIN [Suspect]
     Indication: PRODUCT USED FOR UNKNOWN INDICATION
     Route: 048
     Dates: start: 20040401, end: 20070401
  2. OCELLA [Suspect]
     Indication: PRODUCT USED FOR UNKNOWN INDICATION
     Route: 048
     Dates: start: 20080801, end: 20090701
  3. YAZ [Suspect]
     Indication: PRODUCT USED FOR UNKNOWN INDICATION
     Route: 048
     Dates: start: 20070401, end: 20070901
  4. YASMIN [Suspect]
     Route: 048
     Dates: start: 20080201, end: 20080801

REACTIONS (1)
  - GALLBLADDER DISORDER [None]
